FAERS Safety Report 4314046-5 (Version None)
Quarter: 2004Q1

REPORT INFORMATION
  Report Type: 
  Country: None (occurrence: None)
  Receive Date: 20040305
  Receipt Date: 20031031
  Transmission Date: 20041129
  Serious: Yes (Hospitalization)
  Sender: FDA-Public Use
  Company Number: 2003UW13515

PATIENT
  Age: 65 Year
  Sex: Female

DRUGS (5)
  1. CRESTOR [Suspect]
     Dosage: 10 MG PO
     Route: 048
     Dates: start: 20030925, end: 20030925
  2. ATORVASTATIN [Concomitant]
  3. SIMVASTATIN [Concomitant]
  4. PRINIVIL [Concomitant]
  5. PREVACID [Concomitant]

REACTIONS (1)
  - CHEST PAIN [None]
